FAERS Safety Report 14683477 (Version 2)
Quarter: 2018Q1

REPORT INFORMATION
  Report Type: Spontaneous
  Country: US (occurrence: US)
  Receive Date: 20180327
  Receipt Date: 20180330
  Transmission Date: 20180509
  Serious: No
  Sender: FDA-Public Use
  Company Number: US-PFIZER INC-2018124464

PATIENT
  Sex: Female

DRUGS (1)
  1. LYRICA [Suspect]
     Active Substance: PREGABALIN
     Dosage: 100 MG, DAILY(50MG 2 DAILY)

REACTIONS (1)
  - Visual impairment [Unknown]
